FAERS Safety Report 8292084-8 (Version None)
Quarter: 2012Q2

REPORT INFORMATION
  Report Type: 
  Country: None (occurrence: None)
  Receive Date: 20120417
  Receipt Date: 20110922
  Transmission Date: 20120825
  Serious: No
  Sender: FDA-Public Use
  Company Number: US-ASTRAZENECA-2011SE04561

PATIENT
  Age: 59 Year
  Sex: Female

DRUGS (1)
  1. NEXIUM [Suspect]
     Indication: GASTROOESOPHAGEAL REFLUX DISEASE
     Route: 048

REACTIONS (15)
  - VOMITING [None]
  - ADVERSE DRUG REACTION [None]
  - ILL-DEFINED DISORDER [None]
  - INFLUENZA [None]
  - GASTROOESOPHAGEAL REFLUX DISEASE [None]
  - PAIN [None]
  - OROPHARYNGEAL PAIN [None]
  - ACCIDENT AT WORK [None]
  - ABDOMINAL DISCOMFORT [None]
  - NEPHROLITHIASIS [None]
  - MALAISE [None]
  - DYSPNOEA [None]
  - NAUSEA [None]
  - DRUG DOSE OMISSION [None]
  - PNEUMONIA [None]
